FAERS Safety Report 19675124 (Version 1)
Quarter: 2021Q3

REPORT INFORMATION
  Report Type: Spontaneous
  Country: US (occurrence: US)
  Receive Date: 20210809
  Receipt Date: 20210809
  Transmission Date: 20211014
  Serious: No
  Sender: FDA-Public Use
  Company Number: US-ROCHE-2709019

PATIENT
  Sex: Female
  Weight: 55.39 kg

DRUGS (2)
  1. BONIVA [Suspect]
     Active Substance: IBANDRONATE SODIUM
     Indication: OSTEOPOROSIS
     Route: 048
     Dates: start: 20201008
  2. BONIVA [Suspect]
     Active Substance: IBANDRONATE SODIUM
     Indication: OSTEOPENIA
     Route: 048
     Dates: start: 201101

REACTIONS (3)
  - Intentional product use issue [Unknown]
  - Off label use [Unknown]
  - Dyspepsia [Unknown]

NARRATIVE: CASE EVENT DATE: 2011
